FAERS Safety Report 9950289 (Version 1)
Quarter: 2014Q1

REPORT INFORMATION
  Report Type: Spontaneous
  Country: US (occurrence: US)
  Receive Date: 20140304
  Receipt Date: 20140304
  Transmission Date: 20141002
  Serious: No
  Sender: FDA-Public Use
  Company Number: US-ABBVIE-13P-163-1069659-00

PATIENT
  Age: 65 Year
  Sex: Male
  Weight: 122.58 kg

DRUGS (8)
  1. HUMIRA [Suspect]
     Indication: GUTTATE PSORIASIS
     Dosage: ONE DOSE
     Dates: start: 20130302, end: 20130302
  2. HUMIRA [Suspect]
     Dates: start: 20130309
  3. GLYBURIDE [Concomitant]
     Indication: TYPE 2 DIABETES MELLITUS
  4. METFORMIN [Concomitant]
     Indication: TYPE 2 DIABETES MELLITUS
  5. SITAGLIPTIN PHOSPHATE [Concomitant]
     Indication: TYPE 2 DIABETES MELLITUS
  6. LOSARTAN [Concomitant]
     Indication: HYPERTENSION
  7. CLOBETASOL PROPIONATE [Concomitant]
     Indication: GUTTATE PSORIASIS
  8. DOVONEX CREAM [Concomitant]
     Indication: GUTTATE PSORIASIS

REACTIONS (3)
  - Off label use [Not Recovered/Not Resolved]
  - Guttate psoriasis [Not Recovered/Not Resolved]
  - Drug ineffective [Not Recovered/Not Resolved]
